FAERS Safety Report 9181907 (Version 3)
Quarter: 2013Q4

REPORT INFORMATION
  Report Type: Spontaneous
  Country: US (occurrence: US)
  Receive Date: 20130322
  Receipt Date: 20131108
  Transmission Date: 20140711
  Serious: Yes (Death, Hospitalization)
  Sender: FDA-Public Use
  Company Number: US-B.I. PHARMACEUTICALS,INC./RIDGEFIELD-2013-BI-07184BP

PATIENT
  Age: 77 Year
  Sex: Male
  Weight: 65.77 kg

DRUGS (11)
  1. PRADAXA [Suspect]
     Route: 048
     Dates: end: 20110308
  2. ASPIRIN [Concomitant]
     Dosage: 81 MG
     Route: 048
  3. ADVAIR [Concomitant]
     Route: 055
     Dates: start: 2003
  4. CARVEDILOL [Concomitant]
     Route: 048
     Dates: start: 2003
  5. FUROSEMIDE [Concomitant]
     Dosage: 20 MG
     Route: 048
     Dates: start: 2003
  6. LEXAPRO [Concomitant]
     Dosage: 10 MG
     Route: 048
     Dates: start: 2003
  7. PROMETHAZINE-CODEINE [Concomitant]
     Indication: COUGH
     Route: 048
  8. DOXYCYCLINE [Concomitant]
     Dosage: 200 MG
     Route: 048
  9. PREDNISONE [Concomitant]
     Route: 048
  10. FLUTICASONE [Concomitant]
  11. MULTI FOR HIM [Concomitant]

REACTIONS (3)
  - Haemorrhage [Fatal]
  - Respiratory failure [Unknown]
  - Haemoptysis [Unknown]
